FAERS Safety Report 17855782 (Version 1)
Quarter: 2020Q2

REPORT INFORMATION
  Report Type: Spontaneous
  Country: US (occurrence: US)
  Receive Date: 20200603
  Receipt Date: 20200603
  Transmission Date: 20200714
  Serious: Yes (Hospitalization)
  Sender: FDA-Public Use
  Company Number: US-ACTELION-A-NJ2020-205642

PATIENT
  Age: 54 Year
  Sex: Male

DRUGS (1)
  1. UPTRAVI [Suspect]
     Active Substance: SELEXIPAG
     Indication: PULMONARY ARTERIAL HYPERTENSION
     Dosage: 1400 MCG, TID
     Route: 048

REACTIONS (6)
  - Dependence on respirator [Unknown]
  - Respiratory failure [Unknown]
  - Respiratory distress [Unknown]
  - Suspected COVID-19 [Unknown]
  - Pericardial effusion [Unknown]
  - Incorrect dosage administered [Unknown]
